APPROVED DRUG PRODUCT: STADOL PRESERVATIVE FREE
Active Ingredient: BUTORPHANOL TARTRATE
Strength: 2MG/ML **Federal Register determination that product was not discontinued or withdrawn for safety or effectiveness reasons**
Dosage Form/Route: INJECTABLE;INJECTION
Application: N017857 | Product #002
Applicant: APOTHECON INC DIV BRISTOL MYERS SQUIBB
Approved: Approved Prior to Jan 1, 1982 | RLD: Yes | RS: No | Type: DISCN